FAERS Safety Report 5209293-4 (Version None)
Quarter: 2007Q1

REPORT INFORMATION
  Report Type: 
  Country: None (occurrence: None)
  Receive Date: 20070116
  Receipt Date: 20070105
  Transmission Date: 20070707
  Serious: Yes (Life-Threatening)
  Sender: FDA-Public Use
  Company Number: DE-ELI_LILLY_AND_COMPANY-DE200701001056

PATIENT
  Age: 12 Year
  Sex: Male
  Weight: 41 kg

DRUGS (2)
  1. STRATTERA [Suspect]
     Indication: ATTENTION DEFICIT/HYPERACTIVITY DISORDER
     Dosage: 40 MG, EACH MORNING
     Route: 048
     Dates: start: 20060911, end: 20061117
  2. XUSAL [Concomitant]

REACTIONS (2)
  - EMOTIONAL DISORDER [None]
  - SUICIDAL BEHAVIOUR [None]
